FAERS Safety Report 16999346 (Version 1)
Quarter: 2019Q4

REPORT INFORMATION
  Report Type: Spontaneous
  Country: US (occurrence: US)
  Receive Date: 20191105
  Receipt Date: 20191105
  Transmission Date: 20200122
  Serious: Yes (Hospitalization, Other)
  Sender: FDA-Public Use
  Company Number: None

PATIENT
  Age: 44 Year
  Sex: Male
  Weight: 66.15 kg

DRUGS (6)
  1. HYDROCODONE-ACETAMINOPHEN 10-325 TB SUBSTITUTED FOR: NORCO 10-325 [Suspect]
     Active Substance: ACETAMINOPHEN\HYDROCODONE
     Indication: PROCEDURAL PAIN
     Dosage: ?          QUANTITY:1 TABLET(S);?
     Route: 048
     Dates: start: 20191027, end: 20191101
  2. HYDROCODONE-ACETAMINOPHEN 10-325 TB SUBSTITUTED FOR: NORCO 10-325 [Suspect]
     Active Substance: ACETAMINOPHEN\HYDROCODONE
     Indication: PAIN MANAGEMENT
     Dosage: ?          QUANTITY:1 TABLET(S);?
     Route: 048
     Dates: start: 20191027, end: 20191101
  3. IBUPROFIN [Concomitant]
     Active Substance: IBUPROFEN
  4. BENADRYL [Concomitant]
     Active Substance: DIPHENHYDRAMINE HYDROCHLORIDE
  5. NINXIA  RED [Concomitant]
  6. MACUHEALTH [Concomitant]

REACTIONS (2)
  - Diaphragmatic spasm [None]
  - Hiccups [None]

NARRATIVE: CASE EVENT DATE: 20191101
